FAERS Safety Report 4741493-X (Version None)
Quarter: 2005Q3

REPORT INFORMATION
  Report Type: 
  Country: None (occurrence: None)
  Receive Date: 20050810
  Receipt Date: 20050801
  Transmission Date: 20060218
  Serious: Yes (Other)
  Sender: FDA-Public Use
  Company Number: US-BRISTOL-MYERS SQUIBB COMPANY-13058482

PATIENT
  Age: 19 Year
  Sex: Female
  Weight: 80 kg

DRUGS (1)
  1. EXCEDRIN (MIGRAINE) [Suspect]
     Route: 048

REACTIONS (4)
  - HYPOAESTHESIA [None]
  - OVERDOSE [None]
  - PARAESTHESIA [None]
  - VOMITING [None]
